FAERS Safety Report 6692846-4 (Version None)
Quarter: 2010Q2

REPORT INFORMATION
  Report Type: 
  Country: None (occurrence: None)
  Receive Date: 20100422
  Receipt Date: 20100413
  Transmission Date: 20101027
  Serious: Yes (Life-Threatening, Hospitalization)
  Sender: FDA-Public Use
  Company Number: Z0002985B

PATIENT
  Sex: Male
  Weight: 81.1 kg

DRUGS (3)
  1. OFATUMUMAB [Suspect]
     Route: 042
     Dates: start: 20091123
  2. FLUDARABINE [Suspect]
     Route: 042
     Dates: start: 20091125
  3. CYCLOPHOSPHAMIDE [Suspect]
     Route: 042
     Dates: start: 20091125

REACTIONS (6)
  - DIARRHOEA [None]
  - FEBRILE NEUTROPENIA [None]
  - NAUSEA [None]
  - NEUTROPENIA [None]
  - PROCTALGIA [None]
  - STOMATITIS [None]
